FAERS Safety Report 12069646 (Version 2)
Quarter: 2016Q2

REPORT INFORMATION
  Report Type: Report from Study
  Country: US (occurrence: US)
  Receive Date: 20160211
  Receipt Date: 20160526
  Transmission Date: 20160815
  Serious: Yes (Hospitalization)
  Sender: FDA-Public Use
  Company Number: US-JNJFOC-20160200021

PATIENT
  Age: 24 Year
  Sex: Male
  Weight: 48.7 kg

DRUGS (3)
  1. ETHANOL [Suspect]
     Active Substance: ALCOHOL
     Indication: PRODUCT USED FOR UNKNOWN INDICATION
     Route: 065
     Dates: start: 201507
  2. APAP [Suspect]
     Active Substance: ACETAMINOPHEN
     Indication: PRODUCT USED FOR UNKNOWN INDICATION
     Route: 048
     Dates: start: 201507
  3. APAP [Suspect]
     Active Substance: ACETAMINOPHEN
     Route: 048

REACTIONS (8)
  - Prothrombin time prolonged [Recovered/Resolved]
  - Vomiting [Recovered/Resolved]
  - Blood bilirubin increased [Recovered/Resolved]
  - Drug administration error [Recovered/Resolved]
  - Transaminases increased [Recovered/Resolved]
  - Abdominal pain [Recovered/Resolved]
  - Self injurious behaviour [Recovered/Resolved]
  - Intentional overdose [Recovered/Resolved]

NARRATIVE: CASE EVENT DATE: 201507
